FAERS Safety Report 5725446-0 (Version None)
Quarter: 2008Q2

REPORT INFORMATION
  Report Type: 
  Country: None (occurrence: None)
  Receive Date: 20080501
  Receipt Date: 20080425
  Transmission Date: 20081010
  Serious: Yes (Hospitalization, Other)
  Sender: FDA-Public Use
  Company Number: US-ASTRAZENECA-2007UW18711

PATIENT
  Age: 14951 Day
  Sex: Female
  Weight: 101.4 kg

DRUGS (28)
  1. SEROQUEL [Suspect]
     Indication: ILL-DEFINED DISORDER
     Dosage: 25 MG TO 100 MG
     Route: 048
     Dates: start: 19980101, end: 20071101
  2. ZOLOFT [Concomitant]
  3. DEPAKOTE [Concomitant]
  4. DEPAKOTE [Concomitant]
  5. TRAZODONE HCL [Concomitant]
  6. ZYPREXA [Concomitant]
     Indication: SCHIZOPHRENIA
     Dosage: 10MG - 20MG
     Dates: start: 19970701, end: 20071101
  7. ARTANE [Concomitant]
     Dates: start: 20050811
  8. ASPIRIN [Concomitant]
  9. LASIX [Concomitant]
  10. PANTOPRAZOLE SODIUM [Concomitant]
  11. DSS [Concomitant]
  12. LISINOPRIL [Concomitant]
  13. INDERAL [Concomitant]
  14. GLUCOPHAGE [Concomitant]
  15. ACTOS [Concomitant]
  16. PENTASA [Concomitant]
  17. GLYBURIDE [Concomitant]
  18. DITROPAN XL [Concomitant]
  19. ATENOLOL [Concomitant]
  20. SALSALATE [Concomitant]
  21. LIPITOR [Concomitant]
  22. TRAMADOL HCL [Concomitant]
     Dosage: 1 - 2 TAB Q6 HOURS
  23. ALBUTEROL [Concomitant]
  24. COUMADIN [Concomitant]
  25. MACROBID [Concomitant]
  26. CLOZARIL [Concomitant]
  27. HALDOL [Concomitant]
  28. ABILIFY (ARIPIPARAZOLE) [Concomitant]
     Dates: start: 20030429, end: 20030508

REACTIONS (7)
  - ABDOMINAL PAIN [None]
  - CEREBROVASCULAR ACCIDENT [None]
  - DIABETES MELLITUS [None]
  - MUSCULAR WEAKNESS [None]
  - NEOPLASM MALIGNANT [None]
  - PAIN [None]
  - TREMOR [None]
